FAERS Safety Report 5617383-7 (Version None)
Quarter: 2008Q1

REPORT INFORMATION
  Report Type: 
  Country: None (occurrence: None)
  Receive Date: 20080207
  Receipt Date: 20070731
  Transmission Date: 20080703
  Serious: No
  Sender: FDA-Public Use
  Company Number: A0667366A

PATIENT
  Sex: Female

DRUGS (8)
  1. PAXIL [Suspect]
     Indication: DEPRESSION
     Dosage: 40MG PER DAY
     Route: 048
     Dates: start: 19970101, end: 19990101
  2. WELLBUTRIN SR [Suspect]
     Indication: DEPRESSION
     Route: 048
     Dates: start: 20000201
  3. LAMICTAL [Concomitant]
     Indication: DEPRESSION
     Route: 048
     Dates: start: 20040101
  4. PROZAC [Concomitant]
     Route: 048
  5. EFFEXOR [Concomitant]
  6. LEXAPRO [Concomitant]
  7. ZOLOFT [Concomitant]
  8. SERZONE [Concomitant]

REACTIONS (1)
  - DRUG INEFFECTIVE [None]
